FAERS Safety Report 14292841 (Version 3)
Quarter: 2018Q1

REPORT INFORMATION
  Report Type: Spontaneous
  Country: FR (occurrence: FR)
  Receive Date: 20171215
  Receipt Date: 20180111
  Transmission Date: 20180509
  Serious: Yes (Death)
  Sender: FDA-Public Use
  Company Number: FR-PFIZER INC-2017531233

PATIENT
  Sex: Male

DRUGS (6)
  1. DOXORUBICIN HCL [Suspect]
     Active Substance: DOXORUBICIN HYDROCHLORIDE
     Indication: OSTEOSARCOMA
     Dosage: 37.5 MG/M2 CYCLIC (6 M-AP POST-OPERATIVELY)
  2. ETOPOSIDE. [Suspect]
     Active Substance: ETOPOSIDE
     Indication: OSTEOSARCOMA
     Dosage: 75 MG/M2, CYCLIC (6 M + 2 EI PRE-OPERATIVELY)
  3. CISPLATINUM [Suspect]
     Active Substance: CISPLATIN
     Indication: OSTEOSARCOMA
     Dosage: 120 MG/M2, CYCLIC (6 M-AP POST-OPERATIVELY)
  4. IFOSFAMIDE. [Suspect]
     Active Substance: IFOSFAMIDE
     Indication: OSTEOSARCOMA
     Dosage: 3 G/M2, CYCLIC (6 M + 2 EI PRE-OPERATIVELY)
  5. METHOTREXATE SODIUM. [Suspect]
     Active Substance: METHOTREXATE SODIUM
     Dosage: 12 G/M2 CYCLIC (6 M-AP POST-OPERATIVELY)
  6. METHOTREXATE SODIUM. [Suspect]
     Active Substance: METHOTREXATE SODIUM
     Indication: OSTEOSARCOMA
     Dosage: 12 G/M2, CYCLIC (6 M + 2 EI PRE-OPERATIVELY)

REACTIONS (1)
  - Toxicity to various agents [Fatal]
